FAERS Safety Report 6444483-4 (Version None)
Quarter: 2009Q4

REPORT INFORMATION
  Report Type: 
  Country: None (occurrence: None)
  Receive Date: 20091117
  Receipt Date: 20091117
  Transmission Date: 20100525
  Serious: Yes (Death)
  Sender: FDA-Public Use
  Company Number: None

PATIENT
  Sex: Female

DRUGS (1)
  1. TRIVORA-28 [Suspect]
     Indication: CONTRACEPTION
     Dosage: 1 TABLET PER DAY PO
     Route: 048
     Dates: start: 20080101, end: 20080817

REACTIONS (5)
  - DEPRESSED LEVEL OF CONSCIOUSNESS [None]
  - FALL [None]
  - MALAISE [None]
  - PALLOR [None]
  - PULMONARY EMBOLISM [None]
